FAERS Safety Report 4753514-9 (Version None)
Quarter: 2005Q3

REPORT INFORMATION
  Report Type: 
  Country: None (occurrence: None)
  Receive Date: 20050824
  Receipt Date: 20050810
  Transmission Date: 20060218
  Serious: Yes (Other)
  Sender: FDA-Public Use
  Company Number: US146780

PATIENT

DRUGS (1)
  1. NEUPOGEN [Suspect]
     Indication: BLOOD STEM CELL HARVEST
     Dosage: 10 MCG/KG

REACTIONS (2)
  - CHEST PAIN [None]
  - TROPONIN I INCREASED [None]
